FAERS Safety Report 12478106 (Version 2)
Quarter: 2016Q3

REPORT INFORMATION
  Report Type: Report from Study
  Country: FI (occurrence: FI)
  Receive Date: 20160617
  Receipt Date: 20160825
  Transmission Date: 20161109
  Serious: Yes (Hospitalization, Other)
  Sender: FDA-Public Use
  Company Number: PHHY2016FI081806

PATIENT
  Age: 65 Year
  Sex: Male

DRUGS (2)
  1. TRAMETINIB [Suspect]
     Active Substance: TRAMETINIB
     Indication: METASTATIC MALIGNANT MELANOMA
     Dosage: UNK
     Route: 048
     Dates: start: 20160317, end: 20160405
  2. DABRAFENIB [Suspect]
     Active Substance: DABRAFENIB
     Indication: METASTATIC MALIGNANT MELANOMA
     Dosage: 150 MG, BID
     Route: 048
     Dates: start: 20160210, end: 20160405

REACTIONS (6)
  - Lyme disease [Not Recovered/Not Resolved]
  - Disorientation [Recovering/Resolving]
  - Nausea [Recovering/Resolving]
  - Delirium [Recovering/Resolving]
  - Encephalopathy [Not Recovered/Not Resolved]
  - Blood lactic acid increased [Unknown]
